FAERS Safety Report 24843091 (Version 1)
Quarter: 2025Q1

REPORT INFORMATION
  Report Type: Report from Study
  Country: US (occurrence: US)
  Receive Date: 20250115
  Receipt Date: 20250115
  Transmission Date: 20250408
  Serious: No
  Sender: HRA PHARMA
  Company Number: US-ORG100014127-2024000315

PATIENT
  Age: 57 Year
  Sex: Female

DRUGS (13)
  1. LYSODREN [Suspect]
     Active Substance: MITOTANE
     Indication: Adrenal gland cancer
     Dosage: 2 TABLETS TWICE DAILY FOR 1 WEEK
     Route: 048
     Dates: start: 20241004
  2. LYSODREN [Suspect]
     Active Substance: MITOTANE
     Indication: Adrenal gland cancer
     Dosage: 3 TABLETS TWICE DAILY FOR 1 WEEK
     Route: 048
  3. LYSODREN [Suspect]
     Active Substance: MITOTANE
     Indication: Adrenal gland cancer
     Dosage: 4 TABLETS TWICE DAILY FOR 1 WEEK THEN AS DIRECTED BY PRESCRIBER
     Route: 048
  4. LYSODREN [Suspect]
     Active Substance: MITOTANE
     Indication: Adrenal gland cancer
     Dosage: 5 TABLETS TWICE DAILY
     Route: 048
     Dates: start: 202410
  5. ATORVASTATIN [Concomitant]
     Active Substance: ATORVASTATIN
     Indication: Product used for unknown indication
  6. FERROUS SULF TAB 325MG [Concomitant]
     Indication: Product used for unknown indication
  7. FISH OIL CAP 1000MG [Concomitant]
     Indication: Product used for unknown indication
  8. FLUOXETINE TAB 20MG [Concomitant]
     Indication: Product used for unknown indication
  9. HYDROCHLOROT TAB 25MG [Concomitant]
     Indication: Product used for unknown indication
  10. LISINOPRIL [Concomitant]
     Active Substance: LISINOPRIL
     Indication: Product used for unknown indication
  11. METFORMIN [Concomitant]
     Active Substance: METFORMIN HYDROCHLORIDE
     Indication: Product used for unknown indication
  12. VITAMIN B12 TAB 500MCG [Concomitant]
     Indication: Product used for unknown indication
  13. VITAMIN D CAP 2000UNIT [Concomitant]
     Indication: Product used for unknown indication

REACTIONS (2)
  - Hypophagia [Not Recovered/Not Resolved]
  - Fatigue [Not Recovered/Not Resolved]

NARRATIVE: CASE EVENT DATE: 20241001
